FAERS Safety Report 18241103 (Version 2)
Quarter: 2021Q1

REPORT INFORMATION
  Report Type: Spontaneous
  Country: US (occurrence: US)
  Receive Date: 20200908
  Receipt Date: 20210310
  Transmission Date: 20210419
  Serious: Yes (Other)
  Sender: FDA-Public Use
  Company Number: US-SA-2020SA242740

PATIENT
  Age: 66 Year
  Sex: Male

DRUGS (1)
  1. ZANTAC [Suspect]
     Active Substance: RANITIDINE HYDROCHLORIDE
     Indication: DYSPEPSIA
     Dosage: 150 MG, QD
     Dates: start: 201405, end: 201701

REACTIONS (3)
  - Gastric cancer [Recovering/Resolving]
  - Oesophageal carcinoma [Recovering/Resolving]
  - Renal cancer [Recovering/Resolving]

NARRATIVE: CASE EVENT DATE: 20190801
